FAERS Safety Report 15560052 (Version 4)
Quarter: 2019Q1

REPORT INFORMATION
  Report Type: Spontaneous
  Country: DE (occurrence: DE)
  Receive Date: 20181029
  Receipt Date: 20190218
  Transmission Date: 20190417
  Serious: Yes (Hospitalization, Other)
  Sender: FDA-Public Use
  Company Number: DE-MYLANLABS-2018M1080413

PATIENT
  Age: 54 Year
  Sex: Female

DRUGS (4)
  1. PROGESTAN [Suspect]
     Active Substance: PROGESTERONE
     Indication: PREVENTION OF ENDOMETRIAL HYPERPLASIA
     Dosage: UNKNOWN.
     Route: 065
  2. ESTREVA? 0,1 % GEL [Suspect]
     Active Substance: ESTRADIOL
     Dosage: 3 DF, QD (3 PUFFS ONCE A DAY)
     Route: 062
     Dates: start: 2015, end: 2018
  3. PROGESTAN [Suspect]
     Active Substance: PROGESTERONE
     Dosage: 100 MG, QD (1 CAPSULE DAILY)
     Route: 048
     Dates: start: 2015
  4. ESTREVA? 0,1 % GEL [Suspect]
     Active Substance: ESTRADIOL
     Indication: HORMONE REPLACEMENT THERAPY
     Dosage: UNKNOWN
     Route: 062

REACTIONS (3)
  - Epilepsy [Not Recovered/Not Resolved]
  - Epileptic aura [Unknown]
  - Condition aggravated [Unknown]

NARRATIVE: CASE EVENT DATE: 2018
